FAERS Safety Report 11653363 (Version 3)
Quarter: 2015Q4

REPORT INFORMATION
  Report Type: Spontaneous
  Country: JP (occurrence: JP)
  Receive Date: 20151022
  Receipt Date: 20151029
  Transmission Date: 20160304
  Serious: Yes (Other)
  Sender: FDA-Public Use
  Company Number: PHJP2015JP018012

PATIENT
  Age: 73 Year
  Sex: Female

DRUGS (1)
  1. ZOMETA [Suspect]
     Active Substance: ZOLEDRONIC ACID
     Indication: METASTASES TO BONE
     Route: 041

REACTIONS (7)
  - Fistula [Unknown]
  - Tooth loss [Unknown]
  - Inflammation [Unknown]
  - Osteonecrosis of jaw [Unknown]
  - Trismus [Unknown]
  - Purulent discharge [Unknown]
  - Breath odour [Unknown]
